FAERS Safety Report 4378069-2 (Version None)
Quarter: 2004Q2

REPORT INFORMATION
  Report Type: 
  Country: None (occurrence: None)
  Receive Date: 20040616
  Receipt Date: 20040609
  Transmission Date: 20050107
  Serious: Yes (Hospitalization, Other)
  Sender: FDA-Public Use
  Company Number: US-BRISTOL-MYERS SQUIBB COMPANY-12609673

PATIENT
  Sex: Male

DRUGS (3)
  1. TEQUIN [Suspect]
     Indication: URINARY TRACT INFECTION
     Dosage: TWO 1-WEEK COURSES WITH A WEEK OFF IN BETWEEN, 2ND COURSE ENDED 06-JUL-2002
     Dates: start: 20020601, end: 20020706
  2. IBUPROFEN [Suspect]
     Indication: PAIN
  3. STEROIDS [Suspect]
     Route: 042

REACTIONS (4)
  - BLINDNESS TRANSIENT [None]
  - GASTROINTESTINAL HAEMORRHAGE [None]
  - HEADACHE [None]
  - VISUAL DISTURBANCE [None]
